FAERS Safety Report 7323646-X (Version None)
Quarter: 2011Q1

REPORT INFORMATION
  Report Type: 
  Country: None (occurrence: None)
  Receive Date: 20110301
  Receipt Date: 20110223
  Transmission Date: 20110831
  Serious: Yes (Life-Threatening, Hospitalization)
  Sender: FDA-Public Use
  Company Number: US-JNJFOC-20110106654

PATIENT
  Sex: Male
  Weight: 76.66 kg

DRUGS (1)
  1. INVEGA SUSTENNA [Suspect]
     Indication: SCHIZOPHRENIA
     Route: 030

REACTIONS (6)
  - CARDIAC FAILURE [None]
  - CARDIOMYOPATHY [None]
  - VIRAL MYOCARDITIS [None]
  - MYOCARDITIS [None]
  - OEDEMA [None]
  - PRODUCT QUALITY ISSUE [None]
